FAERS Safety Report 6464791-0 (Version None)
Quarter: 2009Q4

REPORT INFORMATION
  Report Type: 
  Country: None (occurrence: None)
  Receive Date: 20091201
  Receipt Date: 20091126
  Transmission Date: 20100525
  Serious: Yes (Death)
  Sender: FDA-Public Use
  Company Number: PHHY2009CA51836

PATIENT
  Sex: Female

DRUGS (3)
  1. EXJADE [Suspect]
     Indication: MYELODYSPLASTIC SYNDROME
     Dosage: 625 MG DAILY
     Route: 048
     Dates: start: 20080101
  2. EXJADE [Suspect]
     Indication: IRON OVERLOAD
     Dosage: 1200 MG DAILY
     Route: 048
     Dates: start: 20080205
  3. EXJADE [Suspect]
     Dosage: 500 MG DAILY
     Route: 048

REACTIONS (1)
  - SMALL INTESTINAL OBSTRUCTION [None]
